FAERS Safety Report 19996596 (Version 1)
Quarter: 2021Q4

REPORT INFORMATION
  Report Type: Spontaneous
  Country: FR (occurrence: FR)
  Receive Date: 20211026
  Receipt Date: 20211026
  Transmission Date: 20220303
  Serious: Yes (Hospitalization)
  Sender: FDA-Public Use
  Company Number: None

PATIENT
  Age: 61 Year
  Sex: Male
  Weight: 49 kg

DRUGS (25)
  1. CARBOPLATIN [Suspect]
     Active Substance: CARBOPLATIN
     Indication: Lung adenocarcinoma stage IV
     Route: 042
     Dates: start: 20210723
  2. CARBOPLATIN [Suspect]
     Active Substance: CARBOPLATIN
     Route: 042
     Dates: start: 20210625
  3. CARBOPLATIN [Suspect]
     Active Substance: CARBOPLATIN
     Dosage: C1
     Route: 042
     Dates: start: 20210409
  4. CARBOPLATIN [Suspect]
     Active Substance: CARBOPLATIN
     Route: 042
     Dates: start: 20210430
  5. PEMBROLIZUMAB [Suspect]
     Active Substance: PEMBROLIZUMAB
     Indication: Lung adenocarcinoma stage IV
     Dosage: C4
     Route: 042
     Dates: start: 20210723
  6. PEMBROLIZUMAB [Suspect]
     Active Substance: PEMBROLIZUMAB
     Dosage: C2
     Route: 042
     Dates: start: 20210430
  7. PEMBROLIZUMAB [Suspect]
     Active Substance: PEMBROLIZUMAB
     Dosage: C1
     Route: 042
     Dates: start: 20210409
  8. PEMBROLIZUMAB [Suspect]
     Active Substance: PEMBROLIZUMAB
     Dosage: C3
     Route: 042
     Dates: start: 20210625
  9. ALIMTA [Suspect]
     Active Substance: PEMETREXED DISODIUM
     Indication: Lung adenocarcinoma stage IV
     Route: 042
     Dates: start: 20210430
  10. ALIMTA [Suspect]
     Active Substance: PEMETREXED DISODIUM
     Dosage: C1
     Route: 042
     Dates: start: 20210409
  11. ALIMTA [Suspect]
     Active Substance: PEMETREXED DISODIUM
     Route: 042
     Dates: start: 20210723
  12. ALIMTA [Suspect]
     Active Substance: PEMETREXED DISODIUM
     Route: 042
     Dates: start: 20210625
  13. ISONIAZID [Suspect]
     Active Substance: ISONIAZID
     Indication: Tuberculosis
     Route: 048
     Dates: start: 20210808, end: 20210810
  14. ISONIAZID [Suspect]
     Active Substance: ISONIAZID
     Route: 048
     Dates: start: 20210702, end: 20210712
  15. ISONIAZID [Suspect]
     Active Substance: ISONIAZID
     Route: 048
     Dates: start: 20210727, end: 20210805
  16. ISONIAZID [Suspect]
     Active Substance: ISONIAZID
     Route: 048
     Dates: start: 20210420, end: 20210514
  17. ETHAMBUTOL HYDROCHLORIDE [Concomitant]
     Active Substance: ETHAMBUTOL HYDROCHLORIDE
     Route: 048
     Dates: start: 20210420, end: 20210515
  18. RIFAMPIN [Concomitant]
     Active Substance: RIFAMPIN
     Route: 048
     Dates: start: 20210630, end: 20210712
  19. RIFAMPIN [Concomitant]
     Active Substance: RIFAMPIN
     Route: 048
     Dates: start: 20210420, end: 20210515
  20. LEVOFLOXACIN [Concomitant]
     Active Substance: LEVOFLOXACIN
     Route: 048
     Dates: start: 20210727, end: 20210808
  21. LEVOFLOXACIN [Concomitant]
     Active Substance: LEVOFLOXACIN
     Route: 048
     Dates: start: 20210630, end: 20210712
  22. LEVOFLOXACIN [Concomitant]
     Active Substance: LEVOFLOXACIN
     Route: 048
     Dates: start: 20210812
  23. BEDAQUILINE [Concomitant]
     Active Substance: BEDAQUILINE
     Route: 048
     Dates: start: 20210812
  24. BEDAQUILINE [Concomitant]
     Active Substance: BEDAQUILINE
     Route: 048
     Dates: start: 20210727, end: 20210805
  25. PYRAZINAMIDE [Concomitant]
     Active Substance: PYRAZINAMIDE
     Route: 048
     Dates: start: 20210420, end: 20210515

REACTIONS (1)
  - Haemophagocytic lymphohistiocytosis [Recovered/Resolved]

NARRATIVE: CASE EVENT DATE: 20210711
